FAERS Safety Report 19584632 (Version 1)
Quarter: 2021Q3

REPORT INFORMATION
  Report Type: Spontaneous
  Country: US (occurrence: US)
  Receive Date: 20210720
  Receipt Date: 20210720
  Transmission Date: 20211014
  Serious: Yes (Life-Threatening, Hospitalization)
  Sender: FDA-Public Use
  Company Number: US-MYLANLABS-2021M1044427

PATIENT
  Age: 46 Year
  Sex: Male

DRUGS (3)
  1. ETOPOSIDE. [Suspect]
     Active Substance: ETOPOSIDE
     Dosage: 100 MILLIGRAM, QD, 100MG/DAY ALTERNATING WITH 50MG/DAY
     Route: 048
  2. ETOPOSIDE. [Suspect]
     Active Substance: ETOPOSIDE
     Dosage: 50 MILLIGRAM, QD, 100MG/DAY ALTERNATING WITH 50MG/DAY
     Route: 048
  3. ETOPOSIDE. [Suspect]
     Active Substance: ETOPOSIDE
     Indication: TESTICULAR YOLK SAC TUMOUR
     Dosage: 100 MILLIGRAM, QD
     Route: 048

REACTIONS (4)
  - Respiratory failure [Recovered/Resolved]
  - Pancytopenia [Unknown]
  - Hypotension [Recovered/Resolved]
  - Pneumocystis jirovecii pneumonia [Recovered/Resolved]
